FAERS Safety Report 7443324-6 (Version None)
Quarter: 2011Q2

REPORT INFORMATION
  Report Type: 
  Country: None (occurrence: None)
  Receive Date: 20110428
  Receipt Date: 20110415
  Transmission Date: 20111010
  Serious: Yes (Other)
  Sender: FDA-Public Use
  Company Number: IE-NAPPMUNDI-GBR-2010-0006988

PATIENT
  Sex: Male

DRUGS (16)
  1. OXYCODONE HCL [Suspect]
     Dosage: 8 MG, DAILY
     Route: 042
     Dates: start: 20100818, end: 20100818
  2. BISOPROLOL [Concomitant]
     Indication: HYPERTENSION
     Dosage: 10 MG, DAILY
     Route: 048
     Dates: start: 20100816
  3. OMEPRAZOLE [Concomitant]
     Indication: PROPHYLAXIS
     Dosage: 20 MG, DAILY
     Route: 048
     Dates: start: 20100816
  4. CLEXANE [Concomitant]
     Indication: PROPHYLAXIS
     Dosage: 20 MG, DAILY
     Route: 058
     Dates: start: 20100816, end: 20100823
  5. OXYCODONE HYDROCHLORIDE [Suspect]
     Dosage: 20 MG, DAILY
     Route: 048
     Dates: start: 20100825, end: 20100825
  6. FUROSEMIDE [Concomitant]
     Indication: MYOCARDIAL ISCHAEMIA
     Dosage: 40 MG, DAILY
     Route: 048
     Dates: start: 20100816
  7. ROPINIROLE [Concomitant]
     Indication: PARKINSON'S DISEASE
     Dosage: 0.5 MG, DAILY
     Route: 048
     Dates: start: 20100816
  8. OXYCODONE HYDROCHLORIDE [Suspect]
     Indication: PROCEDURAL PAIN
     Dosage: 10 MG, DAILY
     Route: 048
     Dates: start: 20100820, end: 20100820
  9. ISOSORBIDE MONONITRATE [Concomitant]
     Indication: ANGINA PECTORIS
     Dosage: 60 MG, DAILY
     Route: 048
     Dates: start: 20100816
  10. OXYCODONE HCL [Suspect]
     Indication: PROCEDURAL PAIN
     Dosage: 35.2 MG, DAILY
     Route: 042
     Dates: start: 20100819, end: 20100820
  11. LOSARTAN POTASSIUM [Concomitant]
     Indication: HYPERTENSION
     Dosage: 100 MG, DAILY
     Route: 048
     Dates: start: 20100816
  12. OXYNORM CAPSULES [Concomitant]
     Indication: PROCEDURAL PAIN
     Dosage: 25 MG, PRN
     Route: 048
     Dates: start: 20100820, end: 20100823
  13. PRAVASTATIN [Concomitant]
     Indication: BLOOD CHOLESTEROL INCREASED
     Dosage: 20 MG, DAILY
     Route: 048
     Dates: start: 20100816
  14. ASPIRIN [Concomitant]
     Indication: CAROTID ARTERY STENOSIS
     Dosage: 75 MG, DAILY
     Route: 048
     Dates: start: 20100816
  15. ACETAMINOPHEN [Concomitant]
     Indication: PAIN MANAGEMENT
     Dosage: 4 G, DAILY
     Dates: start: 20100816, end: 20100826
  16. SERETIDE [Concomitant]
     Indication: CHRONIC OBSTRUCTIVE PULMONARY DISEASE
     Dosage: 250 MCG, UNK
     Route: 055
     Dates: start: 20100816

REACTIONS (4)
  - ATELECTASIS [None]
  - RESPIRATORY DEPRESSION [None]
  - SEDATION [None]
  - HYPOTENSION [None]
